FAERS Safety Report 16517363 (Version 1)
Quarter: 2019Q3

REPORT INFORMATION
  Report Type: Spontaneous
  Country: US (occurrence: US)
  Receive Date: 20190702
  Receipt Date: 20190702
  Transmission Date: 20191004
  Serious: No
  Sender: FDA-Public Use
  Company Number: US-TEVA-2019-US-1068332

PATIENT
  Sex: Male

DRUGS (1)
  1. METHOTREXATE INJECTION [Suspect]
     Active Substance: METHOTREXATE
     Dosage: DOSE STRENGTH:  25 MG/ML, 50 MG
     Route: 030

REACTIONS (1)
  - Injection site pain [Unknown]
